FAERS Safety Report 9607713 (Version 1)
Quarter: 2013Q4

REPORT INFORMATION
  Report Type: Spontaneous
  Country: FR (occurrence: FR)
  Receive Date: 20131009
  Receipt Date: 20131009
  Transmission Date: 20140711
  Serious: Yes (Hospitalization)
  Sender: FDA-Public Use
  Company Number: FR-JNJFOC-20131000989

PATIENT
  Age: 36 Year
  Sex: Male

DRUGS (4)
  1. RISPERDALORO [Suspect]
     Indication: PSYCHOTIC DISORDER
     Route: 048
     Dates: start: 20121026, end: 20121110
  2. TERCIAN [Suspect]
     Indication: PSYCHOTIC DISORDER
     Route: 048
     Dates: start: 20121026, end: 20121110
  3. IMOVANE [Concomitant]
     Indication: PRODUCT USED FOR UNKNOWN INDICATION
     Route: 065
     Dates: start: 20121026
  4. ALPRAZOLAM [Concomitant]
     Indication: PRODUCT USED FOR UNKNOWN INDICATION
     Route: 065
     Dates: start: 20121026

REACTIONS (1)
  - Phlebitis [Recovered/Resolved]
